FAERS Safety Report 13968843 (Version 1)
Quarter: 2017Q3

REPORT INFORMATION
  Report Type: Spontaneous
  Country: GB (occurrence: GB)
  Receive Date: 20170914
  Receipt Date: 20170914
  Transmission Date: 20171128
  Serious: Yes (Other)
  Sender: FDA-Public Use
  Company Number: GB-TEVA-804785ACC

PATIENT
  Age: 3 Year
  Sex: Male
  Weight: 18.4 kg

DRUGS (9)
  1. LINEZOLID. [Suspect]
     Active Substance: LINEZOLID
     Indication: INFECTION
     Route: 042
     Dates: start: 20170820, end: 20170825
  2. CLOBAZAM [Concomitant]
     Active Substance: CLOBAZAM
  3. MORPHINE SULFATE. [Concomitant]
     Active Substance: MORPHINE SULFATE
  4. PHENOBARBITAL SODIUM. [Concomitant]
     Active Substance: PHENOBARBITAL SODIUM
  5. FACTOR IX [Concomitant]
     Dosage: LEVEL 80-120, THREE TIMES A DAY.
  6. VANCOMYCIN [Concomitant]
     Active Substance: VANCOMYCIN
  7. SODIUM VALPROATE [Concomitant]
     Active Substance: VALPROATE SODIUM
  8. DOCUSATE [Concomitant]
     Active Substance: DOCUSATE
  9. AMILORIDE HYDROCHLORIDE. [Concomitant]
     Active Substance: AMILORIDE HYDROCHLORIDE

REACTIONS (1)
  - Neutropenia [Not Recovered/Not Resolved]

NARRATIVE: CASE EVENT DATE: 20170823
